FAERS Safety Report 17638364 (Version 2)
Quarter: 2023Q1

REPORT INFORMATION
  Report Type: Spontaneous
  Country: US (occurrence: US)
  Receive Date: 20200407
  Receipt Date: 20230331
  Transmission Date: 20230418
  Serious: Yes (Other)
  Sender: FDA-Public Use
  Company Number: US-PERRIGO-20US004884

PATIENT

DRUGS (3)
  1. PREVACID 24 HR [Suspect]
     Active Substance: LANSOPRAZOLE
     Indication: Gastrooesophageal reflux disease
     Dosage: 40 MG, QD
     Route: 065
     Dates: start: 2014, end: 2016
  2. NEXIUM 24HR [Suspect]
     Active Substance: ESOMEPRAZOLE MAGNESIUM
     Indication: Product used for unknown indication
     Dosage: UNK
     Route: 065
  3. OMEPRAZOLE [Suspect]
     Active Substance: OMEPRAZOLE
     Indication: Gastrooesophageal reflux disease
     Dosage: 20 MG, QD
     Route: 065
     Dates: start: 20180612, end: 2019

REACTIONS (11)
  - Chronic kidney disease [Not Recovered/Not Resolved]
  - Renal cancer [Unknown]
  - Renal cell carcinoma [Unknown]
  - Nephrectomy [Recovered/Resolved]
  - Renal mass [Unknown]
  - Renal disorder [Unknown]
  - Ureteral disorder [Unknown]
  - Obesity [Unknown]
  - Dysuria [Unknown]
  - Anaemia [Unknown]
  - Single functional kidney [Unknown]

NARRATIVE: CASE EVENT DATE: 20170101
